FAERS Safety Report 10331934 (Version 2)
Quarter: 2014Q3

REPORT INFORMATION
  Report Type: Report from Study
  Country: CA (occurrence: CA)
  Receive Date: 20140722
  Receipt Date: 20140825
  Transmission Date: 20150326
  Serious: Yes (Hospitalization)
  Sender: FDA-Public Use
  Company Number: CA-JNJFOC-20140711311

PATIENT
  Age: 37 Year
  Sex: Male
  Weight: 86.2 kg

DRUGS (8)
  1. REMICADE [Suspect]
     Active Substance: INFLIXIMAB
     Indication: ANKYLOSING SPONDYLITIS
     Route: 042
  2. REMICADE [Suspect]
     Active Substance: INFLIXIMAB
     Indication: ANKYLOSING SPONDYLITIS
     Route: 042
     Dates: start: 20140814
  3. DIPHENCYPRONE [Concomitant]
     Active Substance: DIPHENCYPRONE
     Indication: ALOPECIA
     Dosage: 0.01 DOSE 10 UNITS,DIE
     Route: 061
     Dates: start: 20140301
  4. ARTHROTEC [Concomitant]
     Active Substance: DICLOFENAC SODIUM\MISOPROSTOL
     Indication: PAIN
     Dosage: PRN
     Route: 048
  5. AMCINONIDE. [Concomitant]
     Active Substance: AMCINONIDE
     Indication: ALOPECIA
     Dosage: 1 DOSE 10 UNITS PRID
     Route: 061
     Dates: start: 20130525
  6. REMICADE [Suspect]
     Active Substance: INFLIXIMAB
     Indication: ANKYLOSING SPONDYLITIS
     Route: 042
     Dates: start: 20090121
  7. METHOTREXATE [Suspect]
     Active Substance: METHOTREXATE
     Indication: PRODUCT USED FOR UNKNOWN INDICATION
     Route: 065
  8. FLAGYL [Concomitant]
     Active Substance: METRONIDAZOLE\METRONIDAZOLE HYDROCHLORIDE
     Dosage: 250 MCG, BID
     Route: 055
     Dates: start: 20131225

REACTIONS (2)
  - Tonsillitis [Recovered/Resolved]
  - Sinusitis [Unknown]

NARRATIVE: CASE EVENT DATE: 20140526
